FAERS Safety Report 15608057 (Version 1)
Quarter: 2018Q4

REPORT INFORMATION
  Report Type: Spontaneous
  Country: JP (occurrence: JP)
  Receive Date: 20181112
  Receipt Date: 20181112
  Transmission Date: 20190205
  Serious: Yes (Other)
  Sender: FDA-Public Use
  Company Number: JP-PFIZER INC-2018442648

PATIENT
  Sex: Female

DRUGS (2)
  1. NORVASC [Suspect]
     Active Substance: AMLODIPINE BESYLATE
     Dosage: UNK
     Route: 048
  2. GLYCYRRHIZA EXTRACT [Interacting]
     Active Substance: GLYCYRRHIZA EXTRACT
     Dosage: UNK

REACTIONS (2)
  - Drug interaction [Unknown]
  - Blood pressure inadequately controlled [Unknown]
